FAERS Safety Report 4343492-9 (Version None)
Quarter: 2004Q2

REPORT INFORMATION
  Report Type: 
  Country: None (occurrence: None)
  Receive Date: 20040419
  Receipt Date: 20040311
  Transmission Date: 20050107
  Serious: Yes (Death, Other)
  Sender: FDA-Public Use
  Company Number: A-US2002-00239

PATIENT
  Age: 26 Year
  Sex: Female
  Weight: 53.5 kg

DRUGS (7)
  1. TRACLEER [Suspect]
     Indication: PULMONARY HYPERTENSION
     Dosage: 62.5 MG, BID, ORAL
     Route: 048
     Dates: start: 20020327, end: 20030314
  2. VIRACEPT [Concomitant]
  3. ZERIT [Concomitant]
  4. LASIX [Concomitant]
  5. COUMADIN [Concomitant]
  6. DIGOXIN [Concomitant]
  7. EPIVIR [Concomitant]

REACTIONS (6)
  - DERMATITIS [None]
  - DISEASE PROGRESSION [None]
  - HYPERSENSITIVITY [None]
  - MULTI-ORGAN FAILURE [None]
  - PULMONARY HYPERTENSION [None]
  - SWELLING FACE [None]
